FAERS Safety Report 7468715-9 (Version None)
Quarter: 2011Q2

REPORT INFORMATION
  Report Type: 
  Country: None (occurrence: None)
  Receive Date: 20110510
  Receipt Date: 20110428
  Transmission Date: 20111010
  Serious: No
  Sender: FDA-Public Use
  Company Number: US-BIOGENIDEC-2011BI008689

PATIENT
  Sex: Female

DRUGS (1)
  1. TYSABRI [Suspect]
     Indication: MULTIPLE SCLEROSIS
     Route: 042
     Dates: start: 20100121

REACTIONS (14)
  - HOT FLUSH [None]
  - DIZZINESS [None]
  - BALANCE DISORDER [None]
  - FATIGUE [None]
  - DRUG INEFFECTIVE [None]
  - PRURITUS [None]
  - TREMOR [None]
  - NUCLEAR MAGNETIC RESONANCE IMAGING ABNORMAL [None]
  - ARTHRALGIA [None]
  - MULTIPLE SCLEROSIS RELAPSE [None]
  - MOOD SWINGS [None]
  - LACRIMAL DISORDER [None]
  - ANXIETY [None]
  - DYSPHAGIA [None]
